FAERS Safety Report 11025423 (Version 1)
Quarter: 2015Q2

REPORT INFORMATION
  Report Type: Report from Study
  Country: BR (occurrence: BR)
  Receive Date: 20150414
  Receipt Date: 20150414
  Transmission Date: 20150821
  Serious: Yes (Death, Other)
  Sender: FDA-Public Use
  Company Number: BR-ABBVIE-15K-020-1354330-00

PATIENT
  Age: 51 Year
  Sex: Male
  Weight: 78 kg

DRUGS (1)
  1. HUMIRA [Suspect]
     Active Substance: ADALIMUMAB
     Indication: PSORIATIC ARTHROPATHY
     Route: 058
     Dates: start: 20140703, end: 201412

REACTIONS (9)
  - Asthenia [Unknown]
  - Haematological malignancy [Unknown]
  - Metastases to bone [Fatal]
  - Feeling abnormal [Unknown]
  - Multi-organ failure [Fatal]
  - Thrombocytopenia [Unknown]
  - Anaemia [Unknown]
  - Pain [Unknown]
  - Cardio-respiratory arrest [Fatal]

NARRATIVE: CASE EVENT DATE: 20150405
